FAERS Safety Report 19010165 (Version 1)
Quarter: 2021Q1

REPORT INFORMATION
  Report Type: Spontaneous
  Country: IT (occurrence: IT)
  Receive Date: 20210316
  Receipt Date: 20210316
  Transmission Date: 20210420
  Serious: Yes (Hospitalization)
  Sender: FDA-Public Use
  Company Number: IT-TEVA-2021-IT-1890642

PATIENT
  Age: 41 Year
  Sex: Female

DRUGS (1)
  1. GEMCITABINE. [Suspect]
     Active Substance: GEMCITABINE
     Indication: OVARIAN EPITHELIAL CANCER
     Dosage: ON DAYS 1, 8 AND 15 IN A 28?DAY CYCLE
     Route: 065
     Dates: start: 201909, end: 2020

REACTIONS (5)
  - Bundle branch block right [Recovering/Resolving]
  - Congestive cardiomyopathy [Recovering/Resolving]
  - Cardiac failure congestive [Recovering/Resolving]
  - Atrioventricular block first degree [Recovering/Resolving]
  - Mitral valve incompetence [Recovering/Resolving]
